FAERS Safety Report 11815290 (Version 1)
Quarter: 2015Q4

REPORT INFORMATION
  Report Type: Spontaneous
  Country: HR (occurrence: HR)
  Receive Date: 20151209
  Receipt Date: 20151209
  Transmission Date: 20160305
  Serious: Yes (Life-Threatening)
  Sender: FDA-Public Use
  Company Number: HR-TEVA-616297ISR

PATIENT
  Age: 66 Year
  Sex: Female
  Weight: 72 kg

DRUGS (1)
  1. OXALIPLATIN PLIVA [Suspect]
     Active Substance: OXALIPLATIN
     Indication: PANCREATIC CARCINOMA RECURRENT
     Dosage: 250 MILLIGRAM DAILY;
     Route: 041
     Dates: start: 20151012, end: 20151012

REACTIONS (3)
  - Erythema [Recovered/Resolved]
  - Blood pressure increased [Recovered/Resolved]
  - Asphyxia [Recovered/Resolved]

NARRATIVE: CASE EVENT DATE: 20151012
